FAERS Safety Report 23451865 (Version 2)
Quarter: 2024Q2

REPORT INFORMATION
  Report Type: Spontaneous
  Country: US (occurrence: US)
  Receive Date: 20240129
  Receipt Date: 20240620
  Transmission Date: 20240715
  Serious: Yes (Other)
  Sender: FDA-Public Use
  Company Number: US-SA-SAC20240124000280

PATIENT
  Age: 38 Year
  Sex: Female

DRUGS (2)
  1. DUPIXENT [Suspect]
     Active Substance: DUPILUMAB
     Indication: Asthma
     Dosage: 600 MG, 1X
     Route: 058
     Dates: start: 20231116, end: 20231116
  2. DUPIXENT [Suspect]
     Active Substance: DUPILUMAB
     Dosage: 300 MG, QOW
     Route: 058
     Dates: start: 20231129

REACTIONS (8)
  - Asthma [Unknown]
  - Dyspnoea [Recovering/Resolving]
  - Cough [Unknown]
  - Nasal discomfort [Unknown]
  - Oropharyngeal discomfort [Unknown]
  - Therapeutic response decreased [Unknown]
  - Chest discomfort [Unknown]
  - Upper airway obstruction [Unknown]

NARRATIVE: CASE EVENT DATE: 20240112
